FAERS Safety Report 9302979 (Version 1)
Quarter: 2013Q2

REPORT INFORMATION
  Report Type: Spontaneous
  Country: IT (occurrence: IT)
  Receive Date: 20130522
  Receipt Date: 20130522
  Transmission Date: 20140414
  Serious: Yes (Other)
  Sender: FDA-Public Use
  Company Number: IT-PFIZER INC-2013155533

PATIENT
  Age: 35 Year
  Sex: Female

DRUGS (1)
  1. ALPRAZOLAM [Suspect]
     Indication: ANXIETY
     Dosage: 10 G, TOTAL
     Route: 048
     Dates: start: 20130401, end: 20130401

REACTIONS (2)
  - Self injurious behaviour [Unknown]
  - Drug abuse [Recovering/Resolving]
